FAERS Safety Report 14528614 (Version 1)
Quarter: 2018Q1

REPORT INFORMATION
  Report Type: Report from Study
  Country: BR (occurrence: BR)
  Receive Date: 20180214
  Receipt Date: 20180214
  Transmission Date: 20180509
  Serious: Yes (Other)
  Sender: FDA-Public Use
  Company Number: BR-ACCORD-063219

PATIENT
  Age: 10 Year
  Sex: Male

DRUGS (7)
  1. METHYLPREDNISOLONE. [Suspect]
     Active Substance: METHYLPREDNISOLONE
     Indication: BLAU SYNDROME
  2. MYCOPHENOLIC ACID. [Suspect]
     Active Substance: MYCOPHENOLIC ACID
     Indication: BLAU SYNDROME
  3. REMICADE [Suspect]
     Active Substance: INFLIXIMAB
     Indication: BLAU SYNDROME
  4. PREDNISONE. [Suspect]
     Active Substance: PREDNISONE
     Indication: BLAU SYNDROME
     Route: 048
  5. OZURDEX [Suspect]
     Active Substance: DEXAMETHASONE
     Indication: BLAU SYNDROME
     Route: 050
  6. METHOTREXATE. [Suspect]
     Active Substance: METHOTREXATE
     Indication: BLAU SYNDROME
  7. TRIAMCINOLONE [Suspect]
     Active Substance: TRIAMCINOLONE
     Indication: INFLAMMATION
     Dosage: ONCE A DAY RIGHT EYE
     Route: 050

REACTIONS (5)
  - Macular oedema [Unknown]
  - Off label use [Unknown]
  - Iris adhesions [Unknown]
  - Ocular hypertension [Unknown]
  - Cataract subcapsular [Unknown]
